FAERS Safety Report 13402711 (Version 1)
Quarter: 2017Q2

REPORT INFORMATION
  Report Type: Spontaneous
  Country: US (occurrence: US)
  Receive Date: 20170404
  Receipt Date: 20170404
  Transmission Date: 20170830
  Serious: Yes (Hospitalization)
  Sender: FDA-Public Use
  Company Number: PHHY2017US047345

PATIENT
  Sex: Female

DRUGS (14)
  1. DILTIAZEM. [Interacting]
     Active Substance: DILTIAZEM
     Indication: PRODUCT USED FOR UNKNOWN INDICATION
     Route: 065
  2. RANOLAZINE. [Interacting]
     Active Substance: RANOLAZINE
     Dosage: 50 MG/KG, Q6H
     Route: 065
  3. LEVETIRACETAM. [Concomitant]
     Active Substance: LEVETIRACETAM
     Indication: SEIZURE
     Route: 065
  4. RANOLAZINE. [Interacting]
     Active Substance: RANOLAZINE
     Dosage: 60 MG/KG, QD
     Route: 065
  5. PROPRANOLOL [Concomitant]
     Active Substance: PROPRANOLOL HYDROCHLORIDE
     Indication: PRODUCT USED FOR UNKNOWN INDICATION
     Dosage: 3 MG/KG, Q6H
     Route: 065
  6. MEXILETINE [Concomitant]
     Active Substance: MEXILETINE
     Indication: TORSADE DE POINTES
     Dosage: 30 MG/KG, Q8H
     Route: 065
  7. PHENYTOIN. [Concomitant]
     Active Substance: PHENYTOIN
     Indication: PRODUCT USED FOR UNKNOWN INDICATION
     Dosage: 4 MG/KG, Q8H
     Route: 065
  8. TOPIRAMATE. [Concomitant]
     Active Substance: TOPIRAMATE
     Indication: SEIZURE
     Route: 065
  9. RANOLAZINE. [Interacting]
     Active Substance: RANOLAZINE
     Indication: TORSADE DE POINTES
     Dosage: 25 MG/KG, Q12H
     Route: 065
  10. MEXILETINE [Concomitant]
     Active Substance: MEXILETINE
     Dosage: 10 MG/KG, Q8H
     Route: 065
  11. ISOPROTERENOL [Concomitant]
     Active Substance: ISOPROTERENOL
     Indication: TORSADE DE POINTES
     Route: 065
  12. MAGNESIUM [Concomitant]
     Active Substance: MAGNESIUM
     Indication: TORSADE DE POINTES
     Route: 065
  13. PROPRANOLOL [Concomitant]
     Active Substance: PROPRANOLOL HYDROCHLORIDE
     Dosage: 1 MG/KG, Q8H
  14. VERAPAMIL [Suspect]
     Active Substance: VERAPAMIL HYDROCHLORIDE
     Indication: PRODUCT USED FOR UNKNOWN INDICATION
     Dosage: 4 MG/KG, Q8H
     Route: 065

REACTIONS (3)
  - Disease progression [Unknown]
  - Drug interaction [Unknown]
  - Torsade de pointes [Unknown]
